FAERS Safety Report 5314119-4 (Version None)
Quarter: 2007Q2

REPORT INFORMATION
  Report Type: 
  Country: None (occurrence: None)
  Receive Date: 20070501
  Receipt Date: 20070424
  Transmission Date: 20071010
  Serious: Yes (Other)
  Sender: FDA-Public Use
  Company Number: BR-PFIZER INC-2007033642

PATIENT
  Sex: Female
  Weight: 56 kg

DRUGS (2)
  1. AROMASIN [Suspect]
     Indication: BREAST CANCER
  2. TAMOXIFEN CITRATE [Suspect]
     Indication: BREAST CANCER
     Dates: start: 20010101, end: 20060901

REACTIONS (13)
  - AMNESIA [None]
  - ARTHRALGIA [None]
  - CONSTIPATION [None]
  - FATIGUE [None]
  - HEADACHE [None]
  - HYPERHIDROSIS [None]
  - INSOMNIA [None]
  - LEUKOPENIA [None]
  - MORTON'S NEUROMA [None]
  - OSTEOPOROSIS [None]
  - SWELLING [None]
  - VISUAL ACUITY REDUCED [None]
  - WEIGHT INCREASED [None]
